FAERS Safety Report 17292056 (Version 1)
Quarter: 2020Q1

REPORT INFORMATION
  Report Type: Report from Study
  Country: US (occurrence: US)
  Receive Date: 20200121
  Receipt Date: 20200121
  Transmission Date: 20200409
  Serious: Yes (Other)
  Sender: FDA-Public Use
  Company Number: US-GLAXOSMITHKLINE-US2020TSO010094

PATIENT
  Age: 55 Year
  Sex: Female
  Weight: 74.99 kg

DRUGS (1)
  1. NIRAPARIB [Suspect]
     Active Substance: NIRAPARIB
     Indication: FALLOPIAN TUBE CANCER
     Dosage: 200 MG, QD
     Route: 048
     Dates: start: 20191230

REACTIONS (4)
  - Fatigue [Unknown]
  - Angina pectoris [Recovered/Resolved]
  - Dyspepsia [Unknown]
  - Palpitations [Recovered/Resolved]

NARRATIVE: CASE EVENT DATE: 20200117
